FAERS Safety Report 5170706-8 (Version None)
Quarter: 2006Q4

REPORT INFORMATION
  Report Type: 
  Country: None (occurrence: None)
  Receive Date: 20060919
  Receipt Date: 20060711
  Transmission Date: 20070319
  Serious: No
  Sender: FDA-Public Use
  Company Number: 2006US001552

PATIENT
  Age: 74 Year
  Sex: Female

DRUGS (5)
  1. VESICARE [Suspect]
     Dosage: 5 MG, UID/QD, ORAL
     Route: 048
     Dates: start: 20060501
  2. ZOCOR [Concomitant]
  3. ATENOLOL [Concomitant]
  4. ANTIHYPERTENSIVES [Concomitant]
  5. CHOLESTEROL-AND TRIGLYCERIDE REDUCERS [Concomitant]

REACTIONS (2)
  - DRY MOUTH [None]
  - NOCTURIA [None]
